FAERS Safety Report 15861599 (Version 4)
Quarter: 2019Q1

REPORT INFORMATION
  Report Type: Report from Study
  Country: AT (occurrence: AT)
  Receive Date: 20190124
  Receipt Date: 20190214
  Transmission Date: 20190417
  Serious: Yes (Hospitalization, Other)
  Sender: FDA-Public Use
  Company Number: AT-ROCHE-2247956

PATIENT
  Age: 73 Year
  Sex: Male
  Weight: 74 kg

DRUGS (9)
  1. MOLAXOLE [Concomitant]
     Active Substance: POLYETHYLENE GLYCOL 3350\POTASSIUM CHLORIDE\SODIUM BICARBONATE\SODIUM CHLORIDE
     Indication: CONSTIPATION PROPHYLAXIS
     Route: 048
     Dates: start: 20190115
  2. ZELBORAF [Suspect]
     Active Substance: VEMURAFENIB
     Dosage: 3-0-3
     Route: 048
     Dates: start: 20190114, end: 20190129
  3. COTELLIC [Suspect]
     Active Substance: COBIMETINIB
     Indication: METASTATIC MALIGNANT MELANOMA
     Dosage: 3-0-0
     Route: 048
     Dates: start: 20181206, end: 20190102
  4. HALCION [Concomitant]
     Active Substance: TRIAZOLAM
     Dosage: 0-0-0-1
     Route: 048
     Dates: start: 20190115
  5. FORLAX [Concomitant]
     Active Substance: POLYETHYLENE GLYCOL 4000
     Indication: CONSTIPATION PROPHYLAXIS
     Route: 048
     Dates: start: 20181218
  6. ENAC (AUSTRIA) [Concomitant]
     Indication: HYPERTENSION
     Dosage: 1/2-0-0
     Route: 048
     Dates: start: 20180904
  7. COTELLIC [Suspect]
     Active Substance: COBIMETINIB
     Dosage: 2-0-0
     Route: 048
     Dates: start: 20190114
  8. PANTOPRAZOL [Concomitant]
     Active Substance: PANTOPRAZOLE SODIUM
     Indication: PRODUCT USED FOR UNKNOWN INDICATION
     Dosage: 1-0-0
     Route: 048
     Dates: start: 20180920
  9. ZELBORAF [Suspect]
     Active Substance: VEMURAFENIB
     Indication: METASTATIC MALIGNANT MELANOMA
     Dosage: 4-0-4
     Route: 048
     Dates: start: 20181206, end: 20190102

REACTIONS (6)
  - Erythema [Recovering/Resolving]
  - Epilepsy [Recovered/Resolved]
  - Peripheral swelling [Recovering/Resolving]
  - General physical health deterioration [Not Recovered/Not Resolved]
  - Pancreatic enzymes increased [Not Recovered/Not Resolved]
  - Hypokalaemia [Recovered/Resolved]

NARRATIVE: CASE EVENT DATE: 20181207
